FAERS Safety Report 14552149 (Version 3)
Quarter: 2018Q3

REPORT INFORMATION
  Report Type: Report from Study
  Country: US (occurrence: US)
  Receive Date: 20180220
  Receipt Date: 20180920
  Transmission Date: 20181010
  Serious: Yes (Other)
  Sender: FDA-Public Use
  Company Number: US-ROCHE-1434148

PATIENT
  Sex: Female

DRUGS (24)
  1. VALCYTE [Suspect]
     Active Substance: VALGANCICLOVIR HYDROCHLORIDE
     Indication: CYTOMEGALOVIRUS INFECTION
  2. PERCOCET [Concomitant]
     Active Substance: ACETAMINOPHEN\OXYCODONE HYDROCHLORIDE
  3. TIZANIDINE. [Concomitant]
     Active Substance: TIZANIDINE
  4. AXERT [Concomitant]
     Active Substance: ALMOTRIPTAN MALATE
     Route: 065
  5. TENORMIN [Concomitant]
     Active Substance: ATENOLOL
     Route: 065
  6. COMPAZINE [Concomitant]
     Active Substance: PROCHLORPERAZINE MALEATE
  7. DURAGESIC [Concomitant]
     Active Substance: FENTANYL
     Dosage: 25 MCG/HR
     Route: 065
  8. VALCYTE [Suspect]
     Active Substance: VALGANCICLOVIR HYDROCHLORIDE
     Indication: MALAISE
  9. XANAX [Concomitant]
     Active Substance: ALPRAZOLAM
     Route: 065
  10. NEURONTIN [Concomitant]
     Active Substance: GABAPENTIN
     Route: 065
  11. FOLIC ACID. [Concomitant]
     Active Substance: FOLIC ACID
  12. EVOXAC [Concomitant]
     Active Substance: CEVIMELINE HYDROCHLORIDE
  13. NEXIUM [Concomitant]
     Active Substance: ESOMEPRAZOLE MAGNESIUM
  14. VALCYTE [Suspect]
     Active Substance: VALGANCICLOVIR HYDROCHLORIDE
     Indication: CHRONIC FATIGUE SYNDROME
     Dosage: 1 TABLET, LAST TREATMENT DOSE RECEIVED ON 07/NOV/2013?END DATE: 25/NOV/2015
     Route: 048
     Dates: start: 20131105
  15. VALCYTE [Suspect]
     Active Substance: VALGANCICLOVIR HYDROCHLORIDE
     Indication: MENINGOENCEPHALITIS HERPETIC
  16. MAXALT [Concomitant]
     Active Substance: RIZATRIPTAN BENZOATE
  17. CYMBALTA [Concomitant]
     Active Substance: DULOXETINE HYDROCHLORIDE
     Route: 065
  18. ZOCOR [Concomitant]
     Active Substance: SIMVASTATIN
     Route: 065
  19. VIVELLE (UNITED STATES) [Concomitant]
  20. VALCYTE [Suspect]
     Active Substance: VALGANCICLOVIR HYDROCHLORIDE
     Indication: FATIGUE
  21. PLAQUENIL [Concomitant]
     Active Substance: HYDROXYCHLOROQUINE SULFATE
     Route: 065
  22. DRISDOL [Concomitant]
     Active Substance: ERGOCALCIFEROL
     Dosage: 50000UNIT CAPSULE
     Route: 065
  23. GABAPENTIN. [Concomitant]
     Active Substance: GABAPENTIN
  24. ESTROGENS CONJUGATED [Concomitant]
     Active Substance: ESTROGENS, CONJUGATED

REACTIONS (14)
  - Palpitations [Unknown]
  - Tremor [Unknown]
  - Dry skin [Unknown]
  - Dysphonia [Unknown]
  - Intentional product use issue [Unknown]
  - Oropharyngeal pain [Unknown]
  - Chest pain [Unknown]
  - Cerebral disorder [Unknown]
  - Arthralgia [Not Recovered/Not Resolved]
  - Malaise [Unknown]
  - Oesophageal disorder [Unknown]
  - Off label use [Unknown]
  - Oral herpes [Not Recovered/Not Resolved]
  - Joint swelling [Unknown]
